FAERS Safety Report 4811807-0 (Version None)
Quarter: 2005Q4

REPORT INFORMATION
  Report Type: 
  Country: None (occurrence: None)
  Receive Date: 20051027
  Receipt Date: 20051027
  Transmission Date: 20060501
  Serious: Yes (Life-Threatening, Hospitalization)
  Sender: FDA-Public Use
  Company Number: None

PATIENT
  Age: 74 Year
  Sex: Male
  Weight: 57.1532 kg

DRUGS (1)
  1. ULTRAVIST 300 [Suspect]
     Indication: COMPUTERISED TOMOGRAM
     Dates: start: 20050912, end: 20050912

REACTIONS (4)
  - BRADYCARDIA [None]
  - LOSS OF CONSCIOUSNESS [None]
  - PAIN [None]
  - PULSE ABSENT [None]
